FAERS Safety Report 6465218-5 (Version None)
Quarter: 2009Q4

REPORT INFORMATION
  Report Type: 
  Country: None (occurrence: None)
  Receive Date: 20091201
  Receipt Date: 20091121
  Transmission Date: 20100525
  Serious: Yes (Other)
  Sender: FDA-Public Use
  Company Number: TW-PFIZER INC-2009302075

PATIENT
  Age: 68 Year
  Sex: Male
  Weight: 81 kg

DRUGS (1)
  1. TRANEXAMIC ACID [Suspect]
     Indication: HAEMOPTYSIS
     Dosage: 1000 MG, 4X/DAY
     Route: 041

REACTIONS (2)
  - CONVULSION [None]
  - HYPERAMMONAEMIA [None]
